FAERS Safety Report 5191500-8 (Version None)
Quarter: 2006Q4

REPORT INFORMATION
  Report Type: 
  Country: None (occurrence: None)
  Receive Date: 20061219
  Receipt Date: 20061219
  Transmission Date: 20070319
  Serious: Yes (Other)
  Sender: FDA-Public Use
  Company Number: None

PATIENT
  Sex: Female
  Weight: 45.9947 kg

DRUGS (1)
  1. FLUOXETINE [Suspect]
     Dosage: 10MG  QD  PO
     Route: 048
     Dates: start: 20061215, end: 20061218

REACTIONS (6)
  - AGITATION [None]
  - DIZZINESS [None]
  - PERSONALITY DISORDER [None]
  - PHARMACEUTICAL PRODUCT COMPLAINT [None]
  - POOR QUALITY SLEEP [None]
  - RESTLESS LEGS SYNDROME [None]
